FAERS Safety Report 4711189-9 (Version None)
Quarter: 2005Q3

REPORT INFORMATION
  Report Type: 
  Country: None (occurrence: None)
  Receive Date: 20050711
  Receipt Date: 20050628
  Transmission Date: 20060218
  Serious: Yes (Hospitalization)
  Sender: FDA-Public Use
  Company Number: 200511904JP

PATIENT
  Age: 23 Year
  Sex: Female

DRUGS (1)
  1. DAONIL [Suspect]
     Route: 048

REACTIONS (5)
  - BRAIN OEDEMA [None]
  - CONVULSION [None]
  - DEPRESSED LEVEL OF CONSCIOUSNESS [None]
  - HYPOGLYCAEMIA [None]
  - SUICIDE ATTEMPT [None]
